FAERS Safety Report 5211928-7 (Version None)
Quarter: 2007Q1

REPORT INFORMATION
  Report Type: 
  Country: None (occurrence: None)
  Receive Date: 20070116
  Receipt Date: 20070116
  Transmission Date: 20070707
  Serious: Yes (Hospitalization)
  Sender: FDA-Public Use
  Company Number: None

PATIENT
  Sex: Male
  Weight: 83 kg

DRUGS (4)
  1. FLUOROURACIL [Suspect]
     Dosage: 19900 MG
     Dates: end: 20060822
  2. BEVACIZUMAB (RHUMAB VEGF) [Suspect]
     Dosage: 1620 MG
     Dates: end: 20060822
  3. CAMPTOSAR [Suspect]
     Dosage: 1492 MG
     Dates: end: 20060822
  4. LEUCOVORIN CALCIUM [Suspect]
     Dosage: 3320 MG
     Dates: end: 20060822

REACTIONS (4)
  - DEHYDRATION [None]
  - DIARRHOEA [None]
  - DYSPNOEA [None]
  - HYPOKALAEMIA [None]
